FAERS Safety Report 21690006 (Version 1)
Quarter: 2022Q4

REPORT INFORMATION
  Report Type: Spontaneous
  Country: US (occurrence: US)
  Receive Date: 20221206
  Receipt Date: 20221206
  Transmission Date: 20230113
  Serious: Yes (Other)
  Sender: FDA-Public Use
  Company Number: US-BRISTOL-MYERS SQUIBB COMPANY-2022-147409

PATIENT
  Age: 70 Year
  Sex: Female

DRUGS (1)
  1. REVLIMID [Suspect]
     Active Substance: LENALIDOMIDE
     Indication: Plasma cell myeloma
     Dosage: EVERY OTHER DAY FOR 21 DAYS
     Route: 048
     Dates: start: 20220125

REACTIONS (4)
  - Thrombosis [Unknown]
  - Chest discomfort [Unknown]
  - Headache [Unknown]
  - Tooth disorder [Unknown]

NARRATIVE: CASE EVENT DATE: 20221031
